FAERS Safety Report 13801015 (Version 2)
Quarter: 2017Q3

REPORT INFORMATION
  Report Type: Spontaneous
  Country: JP (occurrence: JP)
  Receive Date: 20170727
  Receipt Date: 20170802
  Transmission Date: 20171127
  Serious: Yes (Other)
  Sender: FDA-Public Use
  Company Number: JP-APOTEX-2017AP015557

PATIENT

DRUGS (1)
  1. PAXIL [Suspect]
     Active Substance: PAROXETINE HYDROCHLORIDE
     Indication: DEPRESSION
     Dosage: 30 MG, QD
     Route: 048

REACTIONS (3)
  - Cardiac failure [Recovered/Resolved]
  - Chest discomfort [Recovered/Resolved]
  - Weight increased [Recovered/Resolved]
